FAERS Safety Report 14991052 (Version 3)
Quarter: 2018Q3

REPORT INFORMATION
  Report Type: Spontaneous
  Country: US (occurrence: US)
  Receive Date: 20180608
  Receipt Date: 20180830
  Transmission Date: 20181010
  Serious: No
  Sender: FDA-Public Use
  Company Number: US-VIFOR (INTERNATIONAL) INC.-VIT-2018-04584

PATIENT
  Age: 21 Year
  Sex: Female
  Weight: 53.5 kg

DRUGS (6)
  1. RENVELA [Concomitant]
     Active Substance: SEVELAMER CARBONATE
     Dosage: TWO TABLETS, THREE TIMES DAILY WITH MEALS
  2. MIRCERA [Suspect]
     Active Substance: METHOXY POLYETHYLENE GLYCOL-EPOETIN BETA
     Indication: ANAEMIA OF CHRONIC DISEASE
     Route: 040
     Dates: start: 20180505, end: 20180505
  3. HECTOROL [Concomitant]
     Active Substance: DOXERCALCIFEROL
     Route: 040
  4. RENAVITE [Concomitant]
     Active Substance: ASCORBIC ACID\BIOTIN\CALCIUM PANTOTHENATE\CYANOCOBALAMIN\FOLIC ACID\NIACINAMIDE\PYRIDOXINE HYDROCHLORIDE\RIBOFLAVIN\THIAMINE MONONITRATE
  5. VENOFER [Concomitant]
     Active Substance: IRON SUCROSE
     Route: 042
  6. SENSIPAR [Concomitant]
     Active Substance: CINACALCET HYDROCHLORIDE

REACTIONS (4)
  - Abdominal discomfort [Recovered/Resolved]
  - Dyspnoea [Recovered/Resolved]
  - Drug hypersensitivity [Recovered/Resolved]
  - Hypoaesthesia oral [Recovered/Resolved]

NARRATIVE: CASE EVENT DATE: 20180505
